FAERS Safety Report 7092732-4 (Version None)
Quarter: 2010Q4

REPORT INFORMATION
  Report Type: 
  Country: None (occurrence: None)
  Receive Date: 20101110
  Receipt Date: 20081207
  Transmission Date: 20110411
  Serious: Yes (Other)
  Sender: FDA-Public Use
  Company Number: US-KINGPHARMUSA00001-K200801386

PATIENT

DRUGS (1)
  1. THROMBIN-JMI [Suspect]
     Indication: CARDIAC OPERATION

REACTIONS (1)
  - HAEMORRHAGE [None]
